FAERS Safety Report 13068492 (Version 1)
Quarter: 2016Q4

REPORT INFORMATION
  Report Type: Spontaneous
  Country: US (occurrence: US)
  Receive Date: 20161228
  Receipt Date: 20161228
  Transmission Date: 20170207
  Serious: Yes (Hospitalization)
  Sender: FDA-Public Use
  Company Number: US-CELGENEUS-USA-2016124237

PATIENT
  Sex: Male

DRUGS (2)
  1. REVLIMID [Suspect]
     Active Substance: LENALIDOMIDE
     Indication: ANAEMIA VITAMIN B12 DEFICIENCY
     Dosage: 5 MG
     Route: 048
     Dates: start: 201511
  2. REVLIMID [Suspect]
     Active Substance: LENALIDOMIDE
     Indication: MYELODYSPLASTIC SYNDROME
     Dosage: 2.5MG
     Route: 048
     Dates: start: 201611

REACTIONS (1)
  - Laboratory test abnormal [Unknown]
